FAERS Safety Report 18179540 (Version 1)
Quarter: 2020Q3

REPORT INFORMATION
  Report Type: Spontaneous
  Country: US (occurrence: US)
  Receive Date: 20200821
  Receipt Date: 20200821
  Transmission Date: 20201103
  Serious: No
  Sender: FDA-Public Use
  Company Number: US-HORIZON-TEP-1456-2020

PATIENT
  Age: 23 Year
  Sex: Female
  Weight: 123.8 kg

DRUGS (5)
  1. NYSTATIN?TRIAMCINOLONE [Concomitant]
  2. METHIMAZOLE. [Concomitant]
     Active Substance: METHIMAZOLE
  3. ATENOLOL. [Concomitant]
     Active Substance: ATENOLOL
  4. NORMAL SALINE [Concomitant]
     Active Substance: SODIUM CHLORIDE
  5. TEPEZZA [Suspect]
     Active Substance: TEPROTUMUMAB-TRBW
     Indication: TOXIC GOITRE
     Dosage: EVERY 3 WEEKS
     Route: 042

REACTIONS (1)
  - Road traffic accident [Unknown]

NARRATIVE: CASE EVENT DATE: 20200809
